FAERS Safety Report 4354384-3 (Version None)
Quarter: 2004Q2

REPORT INFORMATION
  Report Type: 
  Country: None (occurrence: None)
  Receive Date: 20040503
  Receipt Date: 20040426
  Transmission Date: 20050107
  Serious: Yes (Life-Threatening, Hospitalization)
  Sender: FDA-Public Use
  Company Number: 2004SE02349

PATIENT
  Age: 72 Year
  Sex: Female
  Weight: 45 kg

DRUGS (2)
  1. NEXIUM [Suspect]
     Indication: GASTRITIS
     Dosage: 40 MG DAILY PO
     Route: 048
     Dates: start: 20040111, end: 20040113
  2. NEXIUM [Suspect]
     Indication: GASTRODUODENITIS
     Dosage: 40 MG DAILY PO
     Route: 048
     Dates: start: 20040111, end: 20040113

REACTIONS (1)
  - HEPATITIS [None]
